FAERS Safety Report 17201508 (Version 3)
Quarter: 2025Q2

REPORT INFORMATION
  Report Type: Spontaneous
  Country: US (occurrence: US)
  Receive Date: 20191226
  Receipt Date: 20250421
  Transmission Date: 20250717
  Serious: Yes (Other)
  Sender: ROCHE
  Company Number: US-ROCHE-2503977

PATIENT
  Sex: Female
  Weight: 109.0 kg

DRUGS (1)
  1. ALECENSA [Suspect]
     Active Substance: ALECTINIB HYDROCHLORIDE
     Indication: Lung neoplasm malignant
     Route: 065

REACTIONS (2)
  - Product storage error [Unknown]
  - Road traffic accident [Unknown]
